FAERS Safety Report 4773242-3 (Version None)
Quarter: 2005Q3

REPORT INFORMATION
  Report Type: 
  Country: None (occurrence: None)
  Receive Date: 20050916
  Receipt Date: 20050902
  Transmission Date: 20060218
  Serious: Yes (Hospitalization)
  Sender: FDA-Public Use
  Company Number: 2005123762

PATIENT
  Age: 53 Year
  Sex: Female
  Weight: 59.4212 kg

DRUGS (1)
  1. ROGAINE [Suspect]
     Indication: HYPOTRICHOSIS
     Dosage: 1 ML TWICE A DAY TOPICAL
     Route: 061
     Dates: start: 20040201, end: 20050601

REACTIONS (2)
  - ANEURYSM [None]
  - URINARY TRACT INFECTION [None]
